FAERS Safety Report 15426010 (Version 1)
Quarter: 2018Q3

REPORT INFORMATION
  Report Type: Spontaneous
  Country: IT (occurrence: IT)
  Receive Date: 20180925
  Receipt Date: 20180925
  Transmission Date: 20181010
  Serious: Yes (Other)
  Sender: FDA-Public Use
  Company Number: IT-TEVA-2018-IT-958392

PATIENT
  Age: 72 Year
  Sex: Male
  Weight: 77 kg

DRUGS (9)
  1. BICALUTAMIDE. [Concomitant]
     Active Substance: BICALUTAMIDE
     Indication: PROSTATE CANCER METASTATIC
     Dosage: 50 MILLIGRAM DAILY;
     Route: 048
     Dates: start: 20180704, end: 20180802
  2. ZOLEDRONIC ACID [Concomitant]
     Active Substance: ZOLEDRONIC ACID
     Indication: METASTASES TO BONE
     Route: 041
     Dates: start: 20180727, end: 20180823
  3. DOCETAXEL. [Suspect]
     Active Substance: DOCETAXEL
     Indication: PROSTATE CANCER METASTATIC
     Route: 041
     Dates: start: 20180713, end: 20180817
  4. TAMSULOSIN HYDROCHLORIDE. [Concomitant]
     Active Substance: TAMSULOSIN HYDROCHLORIDE
     Indication: BENIGN PROSTATIC HYPERPLASIA
     Dosage: .4 MILLIGRAM DAILY;
     Dates: start: 20050615
  5. ORAMORPH? 20 MG/ML SOLUZIONE ORALE [Concomitant]
     Active Substance: MORPHINE SULFATE
     Indication: BONE PAIN
     Route: 048
     Dates: start: 20180712
  6. DECAPEPTYL [Concomitant]
     Active Substance: TRIPTORELIN
     Indication: PROSTATE CANCER METASTATIC
     Route: 030
     Dates: start: 20180713, end: 20180810
  7. BUPRENORPHINE. [Concomitant]
     Active Substance: BUPRENORPHINE
     Indication: BONE PAIN
     Dosage: 800 MICROGRAM DAILY;
     Route: 003
  8. MOVICOL [Concomitant]
     Active Substance: POLYETHYLENE GLYCOL 3350\POTASSIUM CHLORIDE\SODIUM BICARBONATE\SODIUM CHLORIDE
     Indication: CONSTIPATION
     Dosage: 13.8 GRAM DAILY;
     Route: 048
     Dates: start: 20180712
  9. AVODART [Concomitant]
     Active Substance: DUTASTERIDE
     Indication: BENIGN PROSTATIC HYPERPLASIA
     Dosage: .5 MILLIGRAM DAILY;
     Dates: start: 20050615

REACTIONS (1)
  - Dyspnoea at rest [Recovering/Resolving]

NARRATIVE: CASE EVENT DATE: 20180820
